FAERS Safety Report 4872521-9 (Version None)
Quarter: 2005Q4

REPORT INFORMATION
  Report Type: 
  Country: None (occurrence: None)
  Receive Date: 20051230
  Receipt Date: 20051230
  Transmission Date: 20060501
  Serious: Yes (Hospitalization, Other)
  Sender: FDA-Public Use
  Company Number: None

PATIENT
  Sex: Female
  Weight: 63.5036 kg

DRUGS (2)
  1. LUPRON DEPOT [Suspect]
     Indication: ENDOMETRIOSIS
     Dosage: IM SHOT 1 SHOT PER MONTH IM
     Route: 030
     Dates: start: 19980201, end: 19980401
  2. LUPRON DEPOT [Suspect]
     Indication: ENDOMETRIOSIS
     Dosage: IM SHOT 1 SHOT PER MONTH IM
     Route: 030
     Dates: start: 19961001, end: 20040601

REACTIONS (20)
  - ACNE [None]
  - BREAST CYST [None]
  - CHRONIC FATIGUE SYNDROME [None]
  - COGNITIVE DISORDER [None]
  - DECREASED INTEREST [None]
  - DEPRESSION [None]
  - DRUG INEFFECTIVE [None]
  - FACE OEDEMA [None]
  - FEAR [None]
  - HAIR COLOUR CHANGES [None]
  - HEART RATE INCREASED [None]
  - HEART RATE IRREGULAR [None]
  - HYPOTHYROIDISM [None]
  - LIBIDO DECREASED [None]
  - MADAROSIS [None]
  - MUSCLE ATROPHY [None]
  - OBSESSIVE-COMPULSIVE DISORDER [None]
  - THYROID DISORDER [None]
  - UTERINE LEIOMYOMA [None]
  - WEIGHT INCREASED [None]
